FAERS Safety Report 5024359-X (Version None)
Quarter: 2006Q2

REPORT INFORMATION
  Report Type: 
  Country: None (occurrence: None)
  Receive Date: 20060607
  Receipt Date: 20060529
  Transmission Date: 20061013
  Serious: Yes (Disabling)
  Sender: FDA-Public Use
  Company Number: 225807

PATIENT
  Age: 62 Year
  Sex: Female

DRUGS (1)
  1. MABTHERA (RITUXIMAB) CONC FOR SOLUTION FOR INFUSION [Suspect]
     Indication: LYMPHOMA
     Dosage: 1 G, INTRAVENOUS
     Route: 042
     Dates: start: 20050628, end: 20050713

REACTIONS (3)
  - DEAFNESS UNILATERAL [None]
  - OTITIS MEDIA [None]
  - TINNITUS [None]
